FAERS Safety Report 25848050 (Version 2)
Quarter: 2025Q4

REPORT INFORMATION
  Report Type: Report from Study
  Country: JP (occurrence: JP)
  Receive Date: 20250925
  Receipt Date: 20251002
  Transmission Date: 20260117
  Serious: Yes (Other)
  Sender: ALEXION PHARMACEUTICALS
  Company Number: JP-ASTRAZENECA-202509JPN017136JP

PATIENT
  Age: 63 Year
  Sex: Female

DRUGS (1)
  1. ULTOMIRIS [Suspect]
     Active Substance: RAVULIZUMAB-CWVZ
     Indication: Neuromyelitis optica spectrum disorder
     Dosage: UNK, Q8W

REACTIONS (4)
  - Blindness unilateral [Unknown]
  - Visual impairment [Unknown]
  - Photophobia [Unknown]
  - Lacrimation increased [Unknown]
